FAERS Safety Report 17729305 (Version 2)
Quarter: 2020Q2

REPORT INFORMATION
  Report Type: Spontaneous
  Country: IT (occurrence: IT)
  Receive Date: 20200430
  Receipt Date: 20200506
  Transmission Date: 20200714
  Serious: Yes (Other)
  Sender: FDA-Public Use
  Company Number: IT-PFIZER INC-2020170796

PATIENT
  Age: 25 Year
  Sex: Female

DRUGS (7)
  1. DOXORUBICIN HCL [Suspect]
     Active Substance: DOXORUBICIN HYDROCHLORIDE
     Indication: PRIMARY MEDIASTINAL LARGE B-CELL LYMPHOMA
     Dosage: UNK, CYCLIC (CYCLES 1, 3, 5, 7, 9, 11)
     Dates: start: 201610
  2. VINCRISTINE SULFATE. [Suspect]
     Active Substance: VINCRISTINE SULFATE
     Indication: PRIMARY MEDIASTINAL LARGE B-CELL LYMPHOMA
     Dosage: UNK, CYCLIC (ON CYCLES 2, 6, 10, ON CYCLES 4, 8, 12)
     Dates: start: 201610
  3. RITUXIMAB. [Suspect]
     Active Substance: RITUXIMAB
     Indication: PRIMARY MEDIASTINAL LARGE B-CELL LYMPHOMA
     Dosage: UNK, CYCLIC (DURING FOUR OF THE 12 CYCLES)
     Dates: start: 201610
  4. CYCLOPHOSPHAMIDE. [Suspect]
     Active Substance: CYCLOPHOSPHAMIDE
     Indication: PRIMARY MEDIASTINAL LARGE B-CELL LYMPHOMA
     Dosage: UNK, CYCLIC (1, 3, 5, 7, 9, 11)
     Dates: start: 201610
  5. METHOTREXATE SODIUM. [Suspect]
     Active Substance: METHOTREXATE SODIUM
     Indication: PRIMARY MEDIASTINAL LARGE B-CELL LYMPHOMA
     Dosage: UNK, CYCLIC (CYCLES 2, 6, 10)
     Dates: start: 201610
  6. BLEOMYCIN [Suspect]
     Active Substance: BLEOMYCIN SULFATE
     Indication: PRIMARY MEDIASTINAL LARGE B-CELL LYMPHOMA
     Dosage: UNK, CYCLIC (CYCLES 4, 8, 12)
     Dates: start: 201610
  7. PREDNISONE. [Suspect]
     Active Substance: PREDNISONE
     Indication: PRIMARY MEDIASTINAL LARGE B-CELL LYMPHOMA
     Dosage: UNK
     Dates: start: 201610

REACTIONS (3)
  - Neutropenia [Recovered/Resolved]
  - Stomatitis [Unknown]
  - Nausea [Unknown]
